FAERS Safety Report 17093228 (Version 2)
Quarter: 2019Q4

REPORT INFORMATION
  Report Type: Spontaneous
  Country: NL (occurrence: NL)
  Receive Date: 20191129
  Receipt Date: 20191205
  Transmission Date: 20200122
  Serious: Yes (Other)
  Sender: FDA-Public Use
  Company Number: NL-TEVA-2019-NL-1143501

PATIENT
  Age: 21 Year
  Sex: Female
  Weight: 69 kg

DRUGS (2)
  1. ANTICONCEPTIEPIL [Concomitant]
  2. DOXYCYCLINE DISP TEVA 100 MG MET WATER INGENOMEN [Suspect]
     Active Substance: DOXYCYCLINE
     Indication: ACNE
     Dosage: 1XPER DAY 2ND DAY , 100 MG 1 DAYS
     Dates: start: 20191014, end: 20191016

REACTIONS (1)
  - Epilepsy [Recovered/Resolved]

NARRATIVE: CASE EVENT DATE: 20191015
